FAERS Safety Report 4534435-3 (Version None)
Quarter: 2004Q4

REPORT INFORMATION
  Report Type: 
  Country: None (occurrence: None)
  Receive Date: 20041222
  Receipt Date: 20041210
  Transmission Date: 20050328
  Serious: Yes (Other)
  Sender: FDA-Public Use
  Company Number: 200422057GDDC

PATIENT
  Age: 39 Year
  Sex: Male

DRUGS (3)
  1. CEFOTAXIME [Suspect]
     Indication: MENINGOCOCCAL SEPSIS
     Route: 042
     Dates: start: 20040609, end: 20040616
  2. ERYTHROMYCIN [Concomitant]
     Indication: INFECTION
     Route: 048
     Dates: start: 20040607, end: 20040609
  3. PARACETAMOL [Concomitant]
     Indication: BODY TEMPERATURE INCREASED
     Route: 048
     Dates: start: 20040609

REACTIONS (1)
  - VON WILLEBRAND'S DISEASE [None]
